FAERS Safety Report 11872172 (Version 1)
Quarter: 2015Q4

REPORT INFORMATION
  Report Type: Spontaneous
  Country: GB (occurrence: GB)
  Receive Date: 20151228
  Receipt Date: 20151228
  Transmission Date: 20160305
  Serious: Yes (Other)
  Sender: FDA-Public Use
  Company Number: GB-PFIZER INC-2015461475

PATIENT
  Age: 41 Year
  Sex: Male
  Weight: 89 kg

DRUGS (1)
  1. EPANUTIN [Suspect]
     Active Substance: PHENYTOIN SODIUM
     Indication: EPILEPSY
     Dosage: 300 MG, 1X/DAY BEFORE BED
     Route: 048
     Dates: start: 20151209, end: 20151211

REACTIONS (6)
  - Disturbance in attention [Unknown]
  - Product substitution issue [Unknown]
  - Drug dispensing error [Unknown]
  - Hypoaesthesia [Recovering/Resolving]
  - Headache [Recovered/Resolved]
  - Coordination abnormal [Unknown]

NARRATIVE: CASE EVENT DATE: 20151210
